FAERS Safety Report 7782506-0 (Version None)
Quarter: 2011Q3

REPORT INFORMATION
  Report Type: 
  Country: None (occurrence: None)
  Receive Date: 20110927
  Receipt Date: 20110927
  Transmission Date: 20111222
  Serious: Yes (Hospitalization)
  Sender: FDA-Public Use
  Company Number: None

PATIENT
  Age: 73 Year
  Sex: Male
  Weight: 92 kg

DRUGS (7)
  1. INFLUENZA VACCINE TRI-SP [Concomitant]
  2. VICODIN HP [Concomitant]
  3. DECITABINE [Suspect]
     Indication: MYELODYSPLASTIC SYNDROME
     Dosage: DECITABINE 0.2 MG /KG SQ
     Route: 058
     Dates: start: 20101117, end: 20110928
  4. ROPINIROLE [Concomitant]
  5. PREGABALIN [Concomitant]
  6. OMEPRAZOLE [Concomitant]
  7. TERAZOSIN HCL [Concomitant]

REACTIONS (1)
  - FEBRILE NEUTROPENIA [None]
